FAERS Safety Report 8960385 (Version 2)
Quarter: 2013Q1

REPORT INFORMATION
  Report Type: Spontaneous
  Country: US (occurrence: US)
  Receive Date: 20121212
  Receipt Date: 20130227
  Transmission Date: 20140127
  Serious: Yes (Hospitalization)
  Sender: FDA-Public Use
  Company Number: US-BAYER-2012-129259

PATIENT
  Age: 38 Year
  Sex: Female

DRUGS (3)
  1. YAZ [Suspect]
     Dosage: UNK
     Dates: start: 20050316, end: 200602
  2. YASMIN [Suspect]
     Dosage: UNK
     Dates: start: 20050316, end: 200602
  3. OCELLA [Suspect]

REACTIONS (8)
  - Cholecystectomy [None]
  - Pain [None]
  - Injury [None]
  - General physical health deterioration [None]
  - Anxiety [None]
  - Anhedonia [None]
  - Emotional distress [None]
  - Pain [None]
